FAERS Safety Report 5451186-1 (Version None)
Quarter: 2007Q3

REPORT INFORMATION
  Report Type: 
  Country: None (occurrence: None)
  Receive Date: 20070913
  Receipt Date: 20070907
  Transmission Date: 20080115
  Serious: Yes (Hospitalization)
  Sender: FDA-Public Use
  Company Number: US-AVENTIS-200716350US

PATIENT
  Age: 52 Year
  Sex: Male

DRUGS (1)
  1. LANTUS [Suspect]
     Dosage: DOSE: UNK

REACTIONS (1)
  - HOSPITALISATION [None]
